FAERS Safety Report 12317222 (Version 1)
Quarter: 2016Q2

REPORT INFORMATION
  Report Type: Spontaneous
  Country: US (occurrence: None)
  Receive Date: 20160428
  Receipt Date: 20160428
  Transmission Date: 20160815
  Serious: No
  Sender: FDA-Public Use
  Company Number: None

PATIENT
  Age: 68 Year
  Sex: Male
  Weight: 78.42 kg

DRUGS (4)
  1. RITUXIMAB (MOAB C2B8 AND CD 20, CHIMERIC) [Suspect]
     Active Substance: RITUXIMAB
     Dates: end: 20160106
  2. LENALIDOMIDE (CC-5013) [Suspect]
     Active Substance: LENALIDOMIDE
     Dates: end: 20160211
  3. VELCADE [Suspect]
     Active Substance: BORTEZOMIB
     Dates: end: 20151111
  4. BENDAMUSTINE HYDROCHLORIDE. [Suspect]
     Active Substance: BENDAMUSTINE HYDROCHLORIDE
     Dates: end: 20151105

REACTIONS (2)
  - Squamous cell carcinoma [None]
  - Neoplasm recurrence [None]

NARRATIVE: CASE EVENT DATE: 20160211
